FAERS Safety Report 12257612 (Version 1)
Quarter: 2016Q2

REPORT INFORMATION
  Report Type: Spontaneous
  Country: US (occurrence: US)
  Receive Date: 20160412
  Receipt Date: 20160412
  Transmission Date: 20160815
  Serious: Yes (Hospitalization)
  Sender: FDA-Public Use
  Company Number: US-VERTEX PHARMACEUTICALS-2016-002251

PATIENT
  Age: 41 Year
  Sex: Male

DRUGS (3)
  1. MEROPENEM. [Suspect]
     Active Substance: MEROPENEM
     Indication: PRODUCT USED FOR UNKNOWN INDICATION
     Route: 065
  2. ORKAMBI [Suspect]
     Active Substance: IVACAFTOR\LUMACAFTOR
     Indication: RESPIRATION ABNORMAL
     Dosage: 400/250 MG, BID
     Route: 048
     Dates: start: 20151022
  3. OXYCODONE [Concomitant]
     Active Substance: OXYCODONE

REACTIONS (3)
  - Asthenia [Not Recovered/Not Resolved]
  - Hospitalisation [Unknown]
  - Bedridden [Unknown]

NARRATIVE: CASE EVENT DATE: 201603
